FAERS Safety Report 9088726 (Version 1)
Quarter: 2013Q1

REPORT INFORMATION
  Report Type: Report from Study
  Country: DE (occurrence: DE)
  Receive Date: 20130131
  Receipt Date: 20130131
  Transmission Date: 20140127
  Serious: Yes (Hospitalization)
  Sender: FDA-Public Use
  Company Number: DE-ASTELLAS-2013US000995

PATIENT
  Age: 69 Year
  Sex: Female
  Weight: 51 kg

DRUGS (9)
  1. BLINDED ERLOTINIB TABLET [Suspect]
     Indication: NON-SMALL CELL LUNG CANCER
     Dosage: UNK
     Route: 048
     Dates: start: 20121001, end: 20121020
  2. BLINDED ERLOTINIB TABLET [Suspect]
     Dosage: UNK
     Route: 048
     Dates: start: 20121207
  3. VERAPAMIL [Concomitant]
     Indication: ATRIAL FIBRILLATION
     Dosage: UNK
     Route: 065
     Dates: start: 20120928
  4. DIGITOXIN [Concomitant]
     Indication: ATRIAL FIBRILLATION
     Dosage: UNK
     Route: 065
     Dates: start: 20120928
  5. VIANI [Concomitant]
     Indication: CHRONIC OBSTRUCTIVE PULMONARY DISEASE
     Dosage: UNK
     Route: 065
     Dates: start: 20120928
  6. SPIRIVA [Concomitant]
     Indication: CHRONIC OBSTRUCTIVE PULMONARY DISEASE
     Dosage: UNK
     Route: 065
     Dates: start: 20120928
  7. ENOXAPARIN [Concomitant]
     Indication: ATRIAL FIBRILLATION
     Dosage: UNK
     Route: 065
     Dates: start: 20120928
  8. METOCLOPRAMID                      /00041901/ [Concomitant]
     Indication: VOMITING
     Dosage: UNK
     Route: 065
     Dates: start: 20121001
  9. LOPERAMIDE [Concomitant]
     Indication: DIARRHOEA
     Dosage: UNK
     Route: 065
     Dates: start: 20121010

REACTIONS (3)
  - Dysphagia [Recovered/Resolved]
  - Dehydration [Recovered/Resolved]
  - Diarrhoea [Recovered/Resolved]
